FAERS Safety Report 7468435-0 (Version None)
Quarter: 2011Q2

REPORT INFORMATION
  Report Type: 
  Country: None (occurrence: None)
  Receive Date: 20110509
  Receipt Date: 20110509
  Transmission Date: 20111010
  Serious: Yes (Death, Other)
  Sender: FDA-Public Use
  Company Number: FR-ABBOTT-11P-056-0719458-00

PATIENT
  Sex: Female
  Weight: 13 kg

DRUGS (7)
  1. SEVOFLURANE [Suspect]
     Indication: ANAESTHESIA
     Route: 055
     Dates: start: 20110405, end: 20110405
  2. FLUORESCEIN SODIUM [Suspect]
     Indication: PRODUCT USED FOR UNKNOWN INDICATION
     Route: 047
     Dates: start: 20110405, end: 20110405
  3. MYDRIATICUM [Concomitant]
     Indication: PREMEDICATION
     Dosage: IN EACH EYE
  4. OXYBUPROCAINE [Concomitant]
     Indication: PRODUCT USED FOR UNKNOWN INDICATION
     Dates: start: 20110405, end: 20110405
  5. NEO-SYNEPHRINOL [Suspect]
     Indication: MYDRIASIS
     Dosage: COLLYRE 10% ONE DROP IN EACH EYE
     Route: 047
     Dates: start: 20110405, end: 20110405
  6. ATARAX [Concomitant]
     Indication: PREMEDICATION
     Dates: start: 20110405
  7. B66 500ML [Concomitant]
     Indication: PRODUCT USED FOR UNKNOWN INDICATION
     Dosage: 45 ML/HR
     Dates: start: 20110405, end: 20110405

REACTIONS (11)
  - PULMONARY HAEMORRHAGE [None]
  - ELECTROCARDIOGRAM QRS COMPLEX PROLONGED [None]
  - OXYGEN SATURATION IMMEASURABLE [None]
  - BRADYCARDIA [None]
  - ACUTE PULMONARY OEDEMA [None]
  - CYANOSIS [None]
  - BLOOD PRESSURE IMMEASURABLE [None]
  - PULSE ABSENT [None]
  - CARDIAC ARREST [None]
  - HEART RATE DECREASED [None]
  - HYPERCAPNIA [None]
